FAERS Safety Report 7510459-9 (Version None)
Quarter: 2011Q2

REPORT INFORMATION
  Report Type: 
  Country: None (occurrence: None)
  Receive Date: 20110527
  Receipt Date: 20110523
  Transmission Date: 20111010
  Serious: Yes (Hospitalization, Congenital Anomaly)
  Sender: FDA-Public Use
  Company Number: US-PFIZER INC-2007095370

PATIENT
  Sex: Male
  Weight: 4 kg

DRUGS (3)
  1. ACYCLOVIR [Concomitant]
     Indication: HERPES SIMPLEX
     Route: 064
  2. AXID [Concomitant]
     Indication: GASTROOESOPHAGEAL REFLUX DISEASE
     Dosage: UNK
     Route: 064
  3. ZOLOFT [Suspect]
     Dosage: UNK
     Route: 064

REACTIONS (2)
  - TRANSPOSITION OF THE GREAT VESSELS [None]
  - DRUG EXPOSURE DURING PREGNANCY [None]
